FAERS Safety Report 7910319-5 (Version None)
Quarter: 2011Q4

REPORT INFORMATION
  Report Type: 
  Country: None (occurrence: None)
  Receive Date: 20111111
  Receipt Date: 20110618
  Transmission Date: 20120403
  Serious: Yes (Other)
  Sender: FDA-Public Use
  Company Number: BR-JNJFOC-20111101317

PATIENT
  Sex: Male

DRUGS (5)
  1. NAPROXEN [Concomitant]
     Indication: ARTHRALGIA
     Route: 048
  2. REMICADE [Suspect]
     Indication: ANKYLOSING SPONDYLITIS
     Dosage: DOSE ALSO REPORTED AS 4 MG/KG
     Route: 042
     Dates: start: 20070731
  3. NAPROXEN [Concomitant]
     Indication: NECK PAIN
     Route: 048
  4. CYCLOBENZAPRINE [Concomitant]
     Indication: ARTHRALGIA
  5. CYCLOBENZAPRINE [Concomitant]
     Indication: NECK PAIN

REACTIONS (2)
  - EMPHYSEMA [None]
  - OSTEOPOROSIS [None]
